FAERS Safety Report 5326931-6 (Version None)
Quarter: 2007Q2

REPORT INFORMATION
  Report Type: 
  Country: None (occurrence: None)
  Receive Date: 20070504
  Receipt Date: 20070423
  Transmission Date: 20071010
  Serious: Yes (Other)
  Sender: FDA-Public Use
  Company Number: B0468681A

PATIENT
  Sex: 0

DRUGS (7)
  1. TOPOTECAN HYDROCHLORIDE (FORMULATION UNKNOWN) (GENERIC) (TOPOTECAN) [Suspect]
     Indication: SMALL CELL LUNG CANCER STAGE UNSPECIFIED
     Dosage: 1 MG/M2 / SEE DOSAGE TEXT / UNKNOWN
  2. PACLITAXEL [Suspect]
     Dosage: 175 MG/M2 / SEE DOSAGE TEXT / UNKNOWN
  3. RADIOTHERAPY (FORMULATION UNKNOWN) (RADIOTHERAPY) [Suspect]
     Dosage: UNK / SEE DOSAGE TEXT / UNKNOWN
  4. ETOPOSIDE [Suspect]
     Dosage: 50 MG / PER DAY / INTRAVENOUS
     Route: 042
  5. CISPLATIN [Suspect]
     Dosage: 3 MG/M2 / UNKNOWN / INTRAVENOUS
     Route: 042
  6. AMIFOSTINE [Suspect]
     Dosage: 500 MG / PER DAY / UNKNOWN
  7. RADIOTHERAPY (FORMULATION UNKNOWN) (RADIOTHERAPY) [Suspect]
     Indication: SMALL CELL LUNG CANCER STAGE UNSPECIFIED

REACTIONS (2)
  - DRUG TOXICITY [None]
  - OESOPHAGITIS [None]
